FAERS Safety Report 10142189 (Version 1)
Quarter: 2014Q2

REPORT INFORMATION
  Report Type: Report from Study
  Country: US (occurrence: US)
  Receive Date: 20140429
  Receipt Date: 20140429
  Transmission Date: 20141212
  Serious: Yes (Death)
  Sender: FDA-Public Use
  Company Number: PHEH2014US008418

PATIENT
  Sex: Male

DRUGS (1)
  1. TOBI [Suspect]
     Dosage: 300 MG/5ML, BID, (TWICE A DAY FOR 28 DAYS ON THEN 28 DAYS OFF)
     Route: 055
     Dates: start: 20130314

REACTIONS (1)
  - Death [Fatal]
